FAERS Safety Report 7595780-0 (Version None)
Quarter: 2011Q3

REPORT INFORMATION
  Report Type: 
  Country: None (occurrence: None)
  Receive Date: 20110707
  Receipt Date: 20110701
  Transmission Date: 20111222
  Serious: Yes (Hospitalization, Other)
  Sender: FDA-Public Use
  Company Number: GB-PFIZER INC-2011063196

PATIENT
  Age: 50 Year
  Sex: Female

DRUGS (5)
  1. FLOXACILLIN SODIUM [Suspect]
     Indication: SEPSIS
     Dosage: 8G, DAILY
     Route: 042
  2. PHENYTOIN [Suspect]
     Indication: EPILEPSY
     Dosage: UNK
  3. PHENOBARBITAL [Suspect]
     Indication: EPILEPSY
     Dosage: UNK
  4. ACETAMINOPHEN [Suspect]
     Indication: SEPSIS
     Dosage: 4G, DAILY
     Route: 065
  5. CARBAMAZEPINE [Suspect]
     Indication: EPILEPSY
     Dosage: UNK

REACTIONS (8)
  - DEPRESSED LEVEL OF CONSCIOUSNESS [None]
  - TACHYCARDIA [None]
  - SEPSIS [None]
  - TACHYPNOEA [None]
  - DRUG INTERACTION [None]
  - HYPOTENSION [None]
  - METABOLIC ACIDOSIS [None]
  - PYROGLUTAMATE INCREASED [None]
